FAERS Safety Report 8666969 (Version 4)
Quarter: 2012Q4

REPORT INFORMATION
  Report Type: 
  Country: JP (occurrence: JP)
  Receive Date: 20120716
  Receipt Date: 20121126
  Transmission Date: 20130627
  Serious: Yes (Death)
  Sender: FDA-Public Use
  Company Number: JP-BAXTER-2012BAX011076

PATIENT
  Age: 63 Year
  Sex: Male

DRUGS (28)
  1. ENDOXAN TAB 50MG [Suspect]
     Indication: IDIOPATHIC PULMONARY FIBROSIS
     Route: 048
     Dates: start: 20061222, end: 20070319
  2. ENDOXAN TAB 50MG [Suspect]
     Route: 048
     Dates: start: 20070320, end: 20080817
  3. ENDOXAN TAB 50MG [Suspect]
     Route: 048
     Dates: start: 20080818, end: 20090524
  4. ENDOXAN TAB 50MG [Suspect]
     Route: 048
     Dates: start: 20090525, end: 20111015
  5. PIRESPA [Suspect]
     Indication: IDIOPATHIC PULMONARY FIBROSIS
     Route: 048
     Dates: start: 20091116, end: 20091130
  6. PIRESPA [Suspect]
     Dosage: 200 mg/am, 200 mg/pm, 400 mg night
     Route: 048
     Dates: start: 20091130, end: 20091214
  7. PIRESPA [Suspect]
     Dosage: 400 mg/am, 400 mg/pm, 600 mg night
     Route: 048
     Dates: start: 20091214, end: 20100707
  8. PIRESPA [Suspect]
     Dosage: 600 mg/am, 600 mg/pm, 400 mg night
     Route: 048
     Dates: start: 20100707, end: 20111011
  9. PREDONINE [Suspect]
     Indication: IDIOPATHIC PULMONARY FIBROSIS
     Route: 048
     Dates: start: 20061222, end: 20111012
  10. PREDONINE [Suspect]
     Indication: IDIOPATHIC PULMONARY FIBROSIS
  11. BAKTAR [Suspect]
     Indication: DRUG USE FOR UNKNOWN INDICATION
     Route: 048
     Dates: start: 20070321, end: 20111015
  12. BAYASPIRIN [Suspect]
     Indication: DRUG USE FOR UNKNOWN INDICATION
     Route: 048
     Dates: start: 20061222, end: 20111015
  13. MUCODYNE [Suspect]
     Indication: IDIOPATHIC PULMONARY FIBROSIS
     Route: 048
     Dates: start: 20070417, end: 20111015
  14. MUCOSOLVAN [Suspect]
     Indication: IDIOPATHIC PULMONARY FIBROSIS
     Route: 048
     Dates: start: 20071023, end: 20111015
  15. ACTONEL [Suspect]
     Indication: DRUG USE FOR UNKNOWN INDICATION
     Route: 048
     Dates: start: 20090526, end: 20111015
  16. ISODINE GARGLE [Suspect]
     Indication: DRUG USE FOR UNKNOWN INDICATION
     Route: 065
     Dates: start: 20090527, end: 20111015
  17. MYSLEE [Suspect]
     Indication: DRUG USE FOR UNKNOWN INDICATION
     Route: 048
     Dates: start: 20070123, end: 20111015
  18. NEORAL [Concomitant]
     Indication: IDIOPATHIC PULMONARY FIBROSIS
     Route: 048
     Dates: start: 20100420, end: 20100424
  19. NEORAL [Concomitant]
     Route: 048
     Dates: start: 20100425, end: 20111011
  20. ARASENA-A [Concomitant]
     Indication: HERPES LABIALIS
     Route: 061
     Dates: start: 20091214, end: 20100329
  21. ALLELOCK [Concomitant]
     Indication: PAPULOERYTHEMATOUS DRUG ERUPTION
     Route: 048
     Dates: start: 20100301, end: 20100317
  22. HIBIDIL [Concomitant]
     Indication: PAPULOERYTHEMATOUS DRUG ERUPTION
     Route: 061
     Dates: start: 20100301, end: 20100304
  23. GENTACIN [Concomitant]
     Indication: PAPULOERYTHEMATOUS DRUG ERUPTION
     Route: 061
     Dates: start: 20100301, end: 20100304
  24. FLOMOX [Concomitant]
     Indication: PAPULOERYTHEMATOUS DRUG ERUPTION
     Route: 048
     Dates: start: 20100301, end: 20100304
  25. PROPETO [Concomitant]
     Indication: PAPULOERYTHEMATOUS DRUG ERUPTION
     Route: 061
     Dates: start: 20100304, end: 20100317
  26. FLORID [Concomitant]
     Indication: ORAL CANDIDIASIS
     Route: 048
     Dates: start: 20100308, end: 20120315
  27. VALTREX [Concomitant]
     Indication: HERPES LABIALIS
     Route: 048
     Dates: start: 20100307, end: 20100312
  28. MYSER [Concomitant]
     Indication: PAPULOERYTHEMATOUS DRUG ERUPTION
     Route: 065

REACTIONS (5)
  - Pneumonia [Fatal]
  - Decreased appetite [Not Recovered/Not Resolved]
  - Oral herpes [Recovered/Resolved]
  - Drug eruption [Recovering/Resolving]
  - Oral candidiasis [Recovering/Resolving]
